FAERS Safety Report 17027274 (Version 1)
Quarter: 2019Q4

REPORT INFORMATION
  Report Type: Spontaneous
  Country: US (occurrence: US)
  Receive Date: 20191113
  Receipt Date: 20191113
  Transmission Date: 20200122
  Serious: Yes (Hospitalization)
  Sender: FDA-Public Use
  Company Number: US-CELGENEUS-USA-20191102568

PATIENT
  Age: 81 Year
  Sex: Male

DRUGS (21)
  1. ABRAXANE [Suspect]
     Active Substance: PACLITAXEL
     Dosage: 224 MILLIGRAM
     Route: 042
     Dates: start: 20190717, end: 20190717
  2. ABRAXANE [Suspect]
     Active Substance: PACLITAXEL
     Dosage: 224 MILLIGRAM
     Route: 042
     Dates: start: 20190731, end: 20190731
  3. OLAPARIB. [Concomitant]
     Active Substance: OLAPARIB
     Indication: NON-SMALL CELL LUNG CANCER STAGE IV
     Dosage: 300 MILLIGRAM
     Route: 048
  4. ABRAXANE [Suspect]
     Active Substance: PACLITAXEL
     Dosage: 224 MILLIGRAM
     Route: 042
     Dates: start: 20190626, end: 20190626
  5. ABRAXANE [Suspect]
     Active Substance: PACLITAXEL
     Dosage: 224 MILLIGRAM
     Route: 042
     Dates: start: 20190710, end: 20190710
  6. ABRAXANE [Suspect]
     Active Substance: PACLITAXEL
     Dosage: 224 MILLIGRAM
     Route: 042
     Dates: start: 20190619, end: 20190619
  7. ABRAXANE [Suspect]
     Active Substance: PACLITAXEL
     Dosage: 224 MILLIGRAM
     Route: 042
     Dates: start: 20190821, end: 20190821
  8. CARBOPLATIN. [Concomitant]
     Active Substance: CARBOPLATIN
     Dosage: 500 MILLIGRAM
     Route: 042
     Dates: start: 20190814, end: 20190814
  9. ABRAXANE [Suspect]
     Active Substance: PACLITAXEL
     Dosage: 224 MILLIGRAM
     Route: 042
     Dates: start: 20190702, end: 20190702
  10. ABRAXANE [Suspect]
     Active Substance: PACLITAXEL
     Dosage: 224 MILLIGRAM
     Route: 042
     Dates: start: 20190807, end: 20190807
  11. MEDI4736 (DURVALUMAB) [Concomitant]
     Active Substance: DURVALUMAB
     Indication: NON-SMALL CELL LUNG CANCER STAGE IV
     Dosage: 1500 MILLIGRAM
     Route: 042
     Dates: start: 20190612, end: 20190612
  12. MEDI4736 (DURVALUMAB) [Concomitant]
     Active Substance: DURVALUMAB
     Dosage: 1500 MILLIGRAM
     Route: 042
     Dates: start: 20190814, end: 20190814
  13. ABRAXANE [Suspect]
     Active Substance: PACLITAXEL
     Dosage: 224 MILLIGRAM
     Route: 042
     Dates: start: 20190828, end: 20190828
  14. MEDI4736 (DURVALUMAB) [Concomitant]
     Active Substance: DURVALUMAB
     Dosage: 1500 MILLIGRAM
     Route: 042
     Dates: start: 20190724, end: 20190724
  15. CARBOPLATIN. [Concomitant]
     Active Substance: CARBOPLATIN
     Indication: NON-SMALL CELL LUNG CANCER STAGE IV
     Dosage: 487 MILLIGRAM
     Route: 042
     Dates: start: 20190612, end: 20190612
  16. CARBOPLATIN. [Concomitant]
     Active Substance: CARBOPLATIN
     Dosage: 487 MILLIGRAM
     Route: 042
     Dates: start: 20190702, end: 20190702
  17. CARBOPLATIN. [Concomitant]
     Active Substance: CARBOPLATIN
     Dosage: 500 MILLIGRAM
     Route: 042
     Dates: start: 20190724, end: 20190724
  18. ABRAXANE [Suspect]
     Active Substance: PACLITAXEL
     Indication: NON-SMALL CELL LUNG CANCER STAGE IV
     Dosage: 224 MILLIGRAM
     Route: 042
     Dates: start: 20190612, end: 20190612
  19. ABRAXANE [Suspect]
     Active Substance: PACLITAXEL
     Dosage: 224 MILLIGRAM
     Route: 042
     Dates: start: 20190724, end: 20190724
  20. ABRAXANE [Suspect]
     Active Substance: PACLITAXEL
     Dosage: 224 MILLIGRAM
     Route: 042
     Dates: start: 20190814, end: 20190814
  21. MEDI4736 (DURVALUMAB) [Concomitant]
     Active Substance: DURVALUMAB
     Dosage: 1500 MILLIGRAM
     Route: 042
     Dates: start: 20190702, end: 20190702

REACTIONS (1)
  - Mental status changes [Not Recovered/Not Resolved]

NARRATIVE: CASE EVENT DATE: 20191025
